FAERS Safety Report 5519347-0 (Version None)
Quarter: 2007Q4

REPORT INFORMATION
  Report Type: 
  Country: None (occurrence: None)
  Receive Date: 20071114
  Receipt Date: 20071108
  Transmission Date: 20080405
  Serious: Yes (Death, Hospitalization)
  Sender: FDA-Public Use
  Company Number: 028-C5013-07101558

PATIENT
  Age: 47 Year
  Sex: Male

DRUGS (4)
  1. CC-5013 (LENALIDOMIDE) (CAPSULES) [Suspect]
     Indication: MULTIPLE MYELOMA
     Dosage: 25 MG, X21 DAYS OF 28 DAY CYCLE, ORAL
     Route: 048
     Dates: start: 20071011, end: 20071031
  2. DEXAMETHASONE TAB [Suspect]
     Indication: MULTIPLE MYELOMA
  3. MS CONTIN (MORPHINE SULFATE) (30 MILLIGRAM) [Concomitant]
  4. ASPIRIN [Concomitant]

REACTIONS (1)
  - PNEUMONIA [None]
